FAERS Safety Report 9838769 (Version 1)
Quarter: 2013Q4

REPORT INFORMATION
  Report Type: Spontaneous
  Country: US (occurrence: None)
  Receive Date: 20131205
  Receipt Date: 20131205
  Transmission Date: 20140711
  Serious: Yes (Other)
  Sender: FDA-Public Use
  Company Number: 163-POMAL-13110892

PATIENT
  Age: 71 Year
  Sex: Male

DRUGS (11)
  1. POMALYST [Suspect]
     Indication: PLASMA CELL MYELOMA
     Route: 048
     Dates: start: 201308
  2. LYRICA (PREGAMBLIN) (CAPSULES) [Concomitant]
  3. LANSOPRAZOLE (LANSOPRAZOLE) (UNKNOWN) [Concomitant]
  4. FENOFIBRATE (FENOFIBRATE) (TABELTS) [Concomitant]
  5. PROZAC (FLUOXETINE HYDROCHLORIDE) [Concomitant]
  6. OXYCODONE HCL (OXYCODONE HYDROCHLORIDE )(UNKNOWN) [Concomitant]
  7. 800 HOUR (C (CALCIUM) [Concomitant]
  8. POTASSIUM (POTASSIUM) (TABLETS) [Concomitant]
  9. BENICAR (OLMESARTAN MEDOXOMIL) (TABLETS) [Concomitant]
  10. VITAMIN B50 (VITAMIN B)(UNKNOWN) [Concomitant]
  11. ASA (ACETYLSALICYLIC ACID) (UNKNOWN) [Concomitant]

REACTIONS (1)
  - Bone pain [None]
